FAERS Safety Report 9783449 (Version 1)
Quarter: 2013Q4

REPORT INFORMATION
  Report Type: Spontaneous
  Country: IT (occurrence: IT)
  Receive Date: 20131226
  Receipt Date: 20131226
  Transmission Date: 20140711
  Serious: Yes (Hospitalization)
  Sender: FDA-Public Use
  Company Number: IT-PFIZER INC-2013365880

PATIENT
  Age: 62 Year
  Sex: Female

DRUGS (3)
  1. TRIATEC [Suspect]
     Indication: HYPERTENSION
     Dosage: 5 MG, DAILY
     Route: 048
     Dates: start: 20131015, end: 20131019
  2. CITALOPRAM [Concomitant]
     Dosage: UNK
  3. ALPRAZOLAM [Concomitant]
     Dosage: UNK

REACTIONS (3)
  - Chest discomfort [Unknown]
  - Asthenia [Unknown]
  - Throat tightness [Unknown]
